FAERS Safety Report 7249385-1 (Version None)
Quarter: 2011Q1

REPORT INFORMATION
  Report Type: 
  Country: None (occurrence: None)
  Receive Date: 20110128
  Receipt Date: 20101130
  Transmission Date: 20110831
  Serious: Yes (Hospitalization, Other)
  Sender: FDA-Public Use
  Company Number: US-BAYER-201027933NA

PATIENT
  Sex: Female
  Weight: 130 kg

DRUGS (3)
  1. YAZ [Suspect]
     Indication: CONTRACEPTION
     Dosage: UNK
     Dates: start: 20090101, end: 20090801
  2. YASMIN [Suspect]
     Indication: CONTRACEPTION
     Dosage: UNK
     Route: 048
     Dates: start: 20070201, end: 20070501
  3. NSAID'S [Concomitant]

REACTIONS (4)
  - FLANK PAIN [None]
  - GALLBLADDER DISORDER [None]
  - PULMONARY EMBOLISM [None]
  - MENTAL DISORDER [None]
